FAERS Safety Report 26202833 (Version 1)
Quarter: 2025Q4

REPORT INFORMATION
  Report Type: Spontaneous
  Country: EU (occurrence: EU)
  Receive Date: 20251226
  Receipt Date: 20251226
  Transmission Date: 20260118
  Serious: Yes (Other)
  Sender: AUROBINDO
  Company Number: EU-INFARMED-J202512-378

PATIENT
  Age: 40 Year
  Sex: Female

DRUGS (1)
  1. PIPERACILLIN SODIUM\TAZOBACTAM SODIUM [Suspect]
     Active Substance: PIPERACILLIN SODIUM\TAZOBACTAM SODIUM
     Indication: Product used for unknown indication
     Dosage: 1 ARBITRARY UNITS (4500 MG 6/6H)
     Dates: start: 20251201, end: 20251202

REACTIONS (3)
  - Eosinophilia [Recovered/Resolved with Sequelae]
  - Rash macular [Recovered/Resolved with Sequelae]
  - Hepatic function abnormal [Recovered/Resolved with Sequelae]

NARRATIVE: CASE EVENT DATE: 20251202
